FAERS Safety Report 16365469 (Version 7)
Quarter: 2020Q1

REPORT INFORMATION
  Report Type: Report from Study
  Country: US (occurrence: US)
  Receive Date: 20190529
  Receipt Date: 20200331
  Transmission Date: 20200409
  Serious: Yes (Other)
  Sender: FDA-Public Use
  Company Number: PHEH2019US022450

PATIENT
  Age: 61 Year
  Sex: Female

DRUGS (1)
  1. GILENYA [Suspect]
     Active Substance: FINGOLIMOD HYDROCHLORIDE
     Indication: MULTIPLE SCLEROSIS
     Dosage: 0.5 MG, QD
     Route: 048
     Dates: start: 2011

REACTIONS (19)
  - Upper limb fracture [Unknown]
  - Bursitis [Unknown]
  - Back pain [Unknown]
  - Aspiration [Unknown]
  - Arthralgia [Not Recovered/Not Resolved]
  - Headache [Unknown]
  - Heart rate increased [Unknown]
  - Weight increased [Unknown]
  - Pain [Unknown]
  - Joint injury [Unknown]
  - Hearing disability [Unknown]
  - Ligament sprain [Unknown]
  - Alopecia [Unknown]
  - Pelvic fracture [Unknown]
  - Arthritis [Unknown]
  - Adverse drug reaction [Unknown]
  - Fall [Unknown]
  - Osteoporosis [Unknown]
  - Inappropriate schedule of product administration [Unknown]

NARRATIVE: CASE EVENT DATE: 201810
